FAERS Safety Report 5258385-2 (Version None)
Quarter: 2007Q1

REPORT INFORMATION
  Report Type: 
  Country: None (occurrence: None)
  Receive Date: 20061117
  Receipt Date: 20060404
  Transmission Date: 20070707
  Serious: Yes (Other)
  Sender: FDA-Public Use
  Company Number: US-JNJFOC-20060301301

PATIENT
  Age: 21 Year
  Sex: Female
  Weight: 63.5036 kg

DRUGS (2)
  1. LEVAQUIN [Suspect]
     Indication: SINUSITIS
     Dosage: 500 MG, 1 IN 1 DAY
     Dates: start: 20060207, end: 20060209
  2. BIRTH CONTROL MEDICATION (ORAL CONTRACEPTIVE NOS) [Concomitant]

REACTIONS (2)
  - DEPRESSED MOOD [None]
  - SUICIDAL IDEATION [None]
